FAERS Safety Report 7293015-X (Version None)
Quarter: 2011Q1

REPORT INFORMATION
  Report Type: 
  Country: None (occurrence: None)
  Receive Date: 20110210
  Receipt Date: 20110210
  Transmission Date: 20110831
  Serious: Yes (Death)
  Sender: FDA-Public Use
  Company Number: None

PATIENT
  Age: 62 Year
  Sex: Male

DRUGS (9)
  1. CLARITHROMYCIN [Concomitant]
  2. DECADRON [Concomitant]
  3. HYDROCHLOROTHIAZIDE [Concomitant]
  4. CYTOXAN [Concomitant]
  5. DILAUDID [Concomitant]
  6. ARIMIDEX [Concomitant]
  7. LISINOPRIL [Concomitant]
  8. REVLIMID [Suspect]
     Indication: MULTIPLE MYELOMA
     Dosage: 10MG QD X 21D ORALLY
     Route: 048
  9. DURAGESIC-50 [Concomitant]

REACTIONS (5)
  - NEOPLASM MALIGNANT [None]
  - PYREXIA [None]
  - MULTIPLE MYELOMA [None]
  - ASTHENIA [None]
  - CHILLS [None]
